FAERS Safety Report 22597617 (Version 1)
Quarter: 2023Q2

REPORT INFORMATION
  Report Type: Spontaneous
  Country: RU (occurrence: RU)
  Receive Date: 20230614
  Receipt Date: 20230614
  Transmission Date: 20230722
  Serious: Yes (Other)
  Sender: FDA-Public Use
  Company Number: RU-ABBVIE-5289440

PATIENT
  Age: 32 Year
  Weight: 70 kg

DRUGS (3)
  1. KALETRA [Suspect]
     Active Substance: LOPINAVIR\RITONAVIR
     Indication: HIV infection
     Dosage: FORM STRENGTH 250 MILLIGRAM
     Route: 048
     Dates: start: 20150918, end: 20190902
  2. TENOFOVIR [Concomitant]
     Active Substance: TENOFOVIR
     Indication: Product used for unknown indication
     Route: 048
     Dates: end: 20190902
  3. ABACAVIR [Concomitant]
     Active Substance: ABACAVIR
     Indication: HIV infection
     Route: 048
     Dates: end: 20190902

REACTIONS (1)
  - Dyslipidaemia [Recovered/Resolved]

NARRATIVE: CASE EVENT DATE: 20190607
